FAERS Safety Report 14469496 (Version 2)
Quarter: 2018Q1

REPORT INFORMATION
  Report Type: Spontaneous
  Country: US (occurrence: US)
  Receive Date: 20180131
  Receipt Date: 20180312
  Transmission Date: 20180509
  Serious: No
  Sender: FDA-Public Use
  Company Number: US-PFIZER INC-2018043183

PATIENT
  Age: 2 Year
  Sex: Male

DRUGS (2)
  1. DESONIDE. [Concomitant]
     Active Substance: DESONIDE
     Indication: ECZEMA
     Dosage: UNK UNK, AS NEEDED
     Dates: start: 201702
  2. EUCRISA [Suspect]
     Active Substance: CRISABOROLE
     Indication: ECZEMA
     Dosage: UNK UNK, 2X/DAY
     Route: 061
     Dates: start: 201701, end: 201702

REACTIONS (4)
  - Application site inflammation [Unknown]
  - Application site erythema [Not Recovered/Not Resolved]
  - Application site pain [Not Recovered/Not Resolved]
  - Erythema [Not Recovered/Not Resolved]

NARRATIVE: CASE EVENT DATE: 2017
